FAERS Safety Report 20357686 (Version 2)
Quarter: 2022Q1

REPORT INFORMATION
  Report Type: Spontaneous
  Country: US (occurrence: US)
  Receive Date: 20220120
  Receipt Date: 20220225
  Transmission Date: 20220423
  Serious: No
  Sender: FDA-Public Use
  Company Number: US-NOVOPROD-841965

PATIENT
  Sex: Female

DRUGS (2)
  1. OZEMPIC [Suspect]
     Active Substance: SEMAGLUTIDE
     Indication: Product used for unknown indication
     Dosage: UNK
     Route: 058
  2. VICTOZA [Suspect]
     Active Substance: LIRAGLUTIDE
     Indication: Product used for unknown indication
     Dosage: UNK
     Route: 058
     Dates: end: 2021

REACTIONS (6)
  - Haemorrhoidal haemorrhage [Unknown]
  - Anxiety [Unknown]
  - Dizziness [Unknown]
  - Constipation [Unknown]
  - Blood glucose decreased [Unknown]
  - Hypersensitivity [Unknown]
